FAERS Safety Report 6306469-X (Version None)
Quarter: 2009Q3

REPORT INFORMATION
  Report Type: 
  Country: None (occurrence: None)
  Receive Date: 20090810
  Receipt Date: 20090729
  Transmission Date: 20100115
  Serious: Yes (Hospitalization)
  Sender: FDA-Public Use
  Company Number: 2009AL000589

PATIENT
  Age: 85 Year
  Sex: Female
  Weight: 65.318 kg

DRUGS (16)
  1. DIGOXIN [Suspect]
     Indication: ATRIAL FIBRILLATION
     Dosage: 0.25MG, DAILY, PO
     Route: 048
     Dates: start: 20080401
  2. PROMETHAZINE [Concomitant]
  3. DIAZEPAM [Concomitant]
  4. REGLAN [Concomitant]
  5. COREG [Concomitant]
  6. PREVACID [Concomitant]
  7. ULTRACET [Concomitant]
  8. XANAX [Concomitant]
  9. PLAVIX [Concomitant]
  10. CARDIZEM CD [Concomitant]
  11. FOLIC ACID [Concomitant]
  12. HYDRALAZINE HCL [Concomitant]
  13. BETAPACE [Concomitant]
  14. ASPIRIN [Concomitant]
  15. MEGACE [Concomitant]
  16. POTASSIUM CHLORIDE [Concomitant]

REACTIONS (18)
  - ABDOMINAL DISCOMFORT [None]
  - AMNESIA [None]
  - ANXIETY [None]
  - BRAIN NATRIURETIC PEPTIDE INCREASED [None]
  - CARDIAC FAILURE CONGESTIVE [None]
  - CONFUSIONAL STATE [None]
  - CYANOSIS [None]
  - DEPRESSED LEVEL OF CONSCIOUSNESS [None]
  - EMOTIONAL DISTRESS [None]
  - FEAR [None]
  - HEART RATE IRREGULAR [None]
  - HYPOKALAEMIA [None]
  - INJURY [None]
  - LETHARGY [None]
  - PAIN [None]
  - PNEUMONIA [None]
  - THERAPEUTIC AGENT TOXICITY [None]
  - TROPONIN INCREASED [None]
